FAERS Safety Report 13872384 (Version 1)
Quarter: 2017Q3

REPORT INFORMATION
  Report Type: Spontaneous
  Country: DE (occurrence: DE)
  Receive Date: 20170816
  Receipt Date: 20170816
  Transmission Date: 20171127
  Serious: Yes (Other)
  Sender: FDA-Public Use
  Company Number: DE-PFIZER INC-2017326150

PATIENT
  Age: 55 Year
  Sex: Male

DRUGS (7)
  1. PAROXETINE. [Concomitant]
     Active Substance: PAROXETINE
     Dosage: 60 MG, UNK
  2. SIMVASTATIN. [Concomitant]
     Active Substance: SIMVASTATIN
  3. TAVOR (LORAZEPAM) [Suspect]
     Active Substance: LORAZEPAM
     Indication: PSYCHOGENIC TREMOR
     Dosage: 1 DF, 3X/DAY
     Dates: start: 201707
  4. AMLODIPINE [Concomitant]
     Active Substance: AMLODIPINE BESYLATE
  5. LYRICA [Concomitant]
     Active Substance: PREGABALIN
     Dosage: 25 MG IN THE MORNING AND 150 MG IN THE EVENING
  6. TAVOR (LORAZEPAM) [Suspect]
     Active Substance: LORAZEPAM
     Dosage: TWO TABLETS AT 12:50 AND ONE TABLET AT 15:43
     Dates: start: 20170726, end: 20170726
  7. ZOLPIDEM [Concomitant]
     Active Substance: ZOLPIDEM\ZOLPIDEM TARTRATE
     Indication: SLEEP DISORDER

REACTIONS (2)
  - Suicidal ideation [Unknown]
  - Product use in unapproved indication [Unknown]
